FAERS Safety Report 25400978 (Version 2)
Quarter: 2025Q2

REPORT INFORMATION
  Report Type: Spontaneous
  Country: US (occurrence: US)
  Receive Date: 20250605
  Receipt Date: 20250609
  Transmission Date: 20250716
  Serious: Yes (Death, Life-Threatening, Hospitalization, Disabling)
  Sender: PFIZER
  Company Number: US-MLMSERVICE-20250528-PI519360-00145-1

PATIENT
  Age: 53 Year
  Sex: Male

DRUGS (1)
  1. FENTANYL CITRATE [Suspect]
     Active Substance: FENTANYL CITRATE

REACTIONS (8)
  - Accidental overdose [Fatal]
  - Leukoencephalopathy [Fatal]
  - Apnoea [Recovering/Resolving]
  - Pyrexia [Recovering/Resolving]
  - Hypotension [Recovering/Resolving]
  - Anoxia [Recovering/Resolving]
  - Unresponsive to stimuli [Recovered/Resolved]
  - Brain hypoxia [Recovered/Resolved]
